FAERS Safety Report 5848978-3 (Version None)
Quarter: 2008Q3

REPORT INFORMATION
  Report Type: 
  Country: None (occurrence: None)
  Receive Date: 20080818
  Receipt Date: 20080818
  Transmission Date: 20090109
  Serious: Yes (Hospitalization, Other)
  Sender: FDA-Public Use
  Company Number: None

PATIENT
  Age: 82 Year
  Sex: Female
  Weight: 43.0917 kg

DRUGS (2)
  1. ACTONEL [Suspect]
     Indication: HYPERPARATHYROIDISM SECONDARY
     Dosage: 2 TABS EVERY MONTH ORAL
     Route: 048
     Dates: start: 20070901, end: 20080601
  2. ACTONEL [Suspect]
     Indication: OSTEOMALACIA
     Dosage: 2 TABS EVERY MONTH ORAL
     Route: 048
     Dates: start: 20070901, end: 20080601

REACTIONS (4)
  - ARTHRALGIA [None]
  - FALL [None]
  - GAIT DISTURBANCE [None]
  - PELVIC FRACTURE [None]
